FAERS Safety Report 22341055 (Version 1)
Quarter: 2023Q2

REPORT INFORMATION
  Report Type: Spontaneous
  Country: US (occurrence: None)
  Receive Date: 20230518
  Receipt Date: 20230518
  Transmission Date: 20230722
  Serious: No
  Sender: FDA-Public Use
  Company Number: None

PATIENT
  Sex: Male

DRUGS (1)
  1. COSENTYX [Suspect]
     Active Substance: SECUKINUMAB
     Indication: Psoriasis
     Dosage: 300MG EVERY 4 WEEKS SUB-Q?
     Route: 058
     Dates: start: 20230414

REACTIONS (3)
  - Therapy non-responder [None]
  - Stress [None]
  - Skin disorder [None]
